FAERS Safety Report 7180568-5 (Version None)
Quarter: 2010Q4

REPORT INFORMATION
  Report Type: 
  Country: None (occurrence: None)
  Receive Date: 20101221
  Receipt Date: 20101217
  Transmission Date: 20110411
  Serious: Yes (Other)
  Sender: FDA-Public Use
  Company Number: US-PFIZER INC-2010174885

PATIENT
  Sex: Female

DRUGS (1)
  1. GEODON [Suspect]
     Dosage: UNK
     Route: 048

REACTIONS (5)
  - ANXIETY [None]
  - BALANCE DISORDER [None]
  - MEMORY IMPAIRMENT [None]
  - NERVOUSNESS [None]
  - TREMOR [None]
